FAERS Safety Report 8261303-6 (Version None)
Quarter: 2012Q2

REPORT INFORMATION
  Report Type: 
  Country: None (occurrence: None)
  Receive Date: 20120405
  Receipt Date: 20120327
  Transmission Date: 20120825
  Serious: Yes (Other)
  Sender: FDA-Public Use
  Company Number: US-BAYER-2011-096172

PATIENT
  Age: 33 Year
  Sex: Female
  Weight: 52.154 kg

DRUGS (5)
  1. LORTAB [Concomitant]
     Dosage: UNK
     Dates: start: 20070413
  2. DICYCLOMINE [Concomitant]
     Dosage: 20 MG, UNK
     Route: 048
     Dates: start: 20070309
  3. FLUCONAZOLE [Concomitant]
     Dosage: 150 MG, UNK
     Route: 048
     Dates: start: 20060306, end: 20080828
  4. YAZ [Suspect]
     Indication: CONTRACEPTION
     Dosage: UNK
     Route: 048
     Dates: start: 20050101, end: 20071101
  5. PHENERGAN HCL [Concomitant]
     Dosage: UNK
     Dates: start: 20070413

REACTIONS (8)
  - INJURY [None]
  - EMOTIONAL DISTRESS [None]
  - CHOLECYSTITIS [None]
  - GALLBLADDER INJURY [None]
  - ANXIETY [None]
  - GENERAL PHYSICAL HEALTH DETERIORATION [None]
  - PAIN [None]
  - SCAR [None]
